FAERS Safety Report 20855940 (Version 1)
Quarter: 2022Q2

REPORT INFORMATION
  Report Type: Report from Study
  Country: US (occurrence: US)
  Receive Date: 20220520
  Receipt Date: 20220520
  Transmission Date: 20220721
  Serious: Yes (Other)
  Sender: FDA-Public Use
  Company Number: US-BAYER-2022A052375

PATIENT
  Age: 53 Year
  Sex: Female

DRUGS (3)
  1. STIVARGA [Suspect]
     Active Substance: REGORAFENIB
     Indication: Glioblastoma
     Dosage: UNK
     Dates: start: 20220103
  2. STIVARGA [Suspect]
     Active Substance: REGORAFENIB
     Indication: Glioblastoma
     Dosage: 120 MG, UNK
  3. STIVARGA [Suspect]
     Active Substance: REGORAFENIB
     Indication: Glioblastoma
     Dosage: 80 MG, QD ON DAYS 1 THROUGH 21,THEN 7 DAYS OFF
     Route: 048

REACTIONS (3)
  - Neuropathy peripheral [Unknown]
  - Skin exfoliation [Unknown]
  - Fatigue [Unknown]
